FAERS Safety Report 23784272 (Version 1)
Quarter: 2024Q2

REPORT INFORMATION
  Report Type: Spontaneous
  Country: US (occurrence: US)
  Receive Date: 20240425
  Receipt Date: 20240425
  Transmission Date: 20240716
  Serious: No
  Sender: FDA-Public Use
  Company Number: US-ABBVIE-5733536

PATIENT

DRUGS (1)
  1. LO LOESTRIN FE [Suspect]
     Active Substance: ETHINYL ESTRADIOL\NORETHINDRONE ACETATE
     Indication: Product used for unknown indication
     Dosage: FORM STRENGTH: NORETHINDRONE 1MG;ETHINYL ESTRAD 10G;ETHINYL ESTRAD 10 G
     Route: 048

REACTIONS (3)
  - Intermenstrual bleeding [Unknown]
  - Product storage error [Unknown]
  - Manufacturing issue [Unknown]
